FAERS Safety Report 8082146-2 (Version None)
Quarter: 2012Q1

REPORT INFORMATION
  Report Type: 
  Country: None (occurrence: None)
  Receive Date: 20120127
  Receipt Date: 20110121
  Transmission Date: 20120608
  Serious: No
  Sender: FDA-Public Use
  Company Number: US-ABBOTT-11P-163-0699886-00

PATIENT
  Age: 56 Year
  Sex: Male

DRUGS (12)
  1. SIMVASTATIN [Concomitant]
     Indication: BLOOD CHOLESTEROL
     Dosage: 40MG PILL AT BEDTIME
  2. DOXIPIN [Concomitant]
     Indication: DEPRESSION
     Dosage: ONE TABLET AT BEDTIME
  3. ZOLPIDEM [Concomitant]
     Indication: INSOMNIA
     Dosage: 10 MG AS NEEDED FOR SLEEP
  4. TOMIPIC EYE DROPS [Concomitant]
     Indication: GLAUCOMA
  5. HUMIRA [Suspect]
     Indication: RHEUMATOID ARTHRITIS
     Dates: start: 20101101
  6. FOLIC ACID [Concomitant]
     Indication: VITAMIN SUPPLEMENTATION
     Dosage: 1 MG DAILY
  7. TRAMADOL HCL [Concomitant]
     Indication: PAIN
     Dosage: 50MG AS NEEDED FOR PAIN
  8. METHOTREXATE [Concomitant]
     Indication: RHEUMATOID ARTHRITIS
     Dosage: 8 PILLS WEEKLY
     Route: 048
  9. TETANUS VACCINE [Concomitant]
     Indication: PRODUCT USED FOR UNKNOWN INDICATION
  10. VITAMIN D [Concomitant]
     Indication: VITAMIN SUPPLEMENTATION
     Dosage: 2000 IU DAILY
  11. CORVEDILOL [Concomitant]
     Indication: BLOOD PRESSURE
     Dosage: 25 MG DAILY
  12. TRAVASTIN EYE DROPS [Concomitant]
     Indication: GLAUCOMA
     Dosage: EYE DROPS

REACTIONS (1)
  - SPLINTER [None]
